FAERS Safety Report 5038018-0 (Version None)
Quarter: 2006Q2

REPORT INFORMATION
  Report Type: 
  Country: None (occurrence: None)
  Receive Date: 20060601
  Receipt Date: 20060204
  Transmission Date: 20061013
  Serious: No
  Sender: FDA-Public Use
  Company Number: 2006PV008129

PATIENT
  Age: 63 Year
  Sex: Female
  Weight: 83.4619 kg

DRUGS (7)
  1. BYETTA [Suspect]
     Indication: DIABETES MELLITUS NON-INSULIN-DEPENDENT
     Dosage: 5 MCG;BID;SC
     Route: 058
     Dates: start: 20060121, end: 20060202
  2. METFORMIN [Concomitant]
  3. ETODOLAC [Concomitant]
  4. ZOCOR [Concomitant]
  5. DIOVAN [Concomitant]
  6. PREVACID [Concomitant]
  7. PRILOSEC OTC [Concomitant]

REACTIONS (5)
  - ABDOMINAL DISTENSION [None]
  - ABDOMINAL PAIN UPPER [None]
  - CONDITION AGGRAVATED [None]
  - DYSPEPSIA [None]
  - GASTROINTESTINAL PAIN [None]
